FAERS Safety Report 9571027 (Version 1)
Quarter: 2013Q3

REPORT INFORMATION
  Report Type: Spontaneous
  Country: US (occurrence: None)
  Receive Date: 20130927
  Receipt Date: 20130927
  Transmission Date: 20140515
  Serious: Yes (Life-Threatening)
  Sender: FDA-Public Use
  Company Number: None

PATIENT
  Age: 74 Year
  Sex: Female
  Weight: 83.6 kg

DRUGS (2)
  1. SIMVASTATIN, 20 MG, MERK/GENERIC? [Suspect]
     Indication: HYPERLIPIDAEMIA
     Dosage: BEDTIME
     Route: 048
  2. SIMVASTATIN, 20 MG, MERK/GENERIC? [Suspect]
     Indication: DIABETES MELLITUS
     Dosage: BEDTIME
     Route: 048

REACTIONS (2)
  - Haemorrhage intracranial [None]
  - Cerebral amyloid angiopathy [None]
